FAERS Safety Report 14717479 (Version 2)
Quarter: 2021Q2

REPORT INFORMATION
  Report Type: Spontaneous
  Country: US (occurrence: US)
  Receive Date: 20180404
  Receipt Date: 20210503
  Transmission Date: 20210716
  Serious: No
  Sender: FDA-Public Use
  Company Number: US-SA-2018SA002844

PATIENT
  Age: 71 Year
  Sex: Male

DRUGS (14)
  1. CLOBETASOL [Concomitant]
     Active Substance: CLOBETASOL
     Dosage: UNK
  2. LISINOPRIL. [Concomitant]
     Active Substance: LISINOPRIL
     Dosage: UNK
  3. JUBLIA [Concomitant]
     Active Substance: EFINACONAZOLE
     Dosage: UNK
  4. VIAGRA [Concomitant]
     Active Substance: SILDENAFIL CITRATE
     Dosage: UNK
  5. ZYRTEC [Concomitant]
     Active Substance: CETIRIZINE HYDROCHLORIDE
     Dosage: UNK
  6. ACETYLSALICYLIC ACID [Concomitant]
     Active Substance: ASPIRIN
     Dosage: UNK
  7. ZETIA [Concomitant]
     Active Substance: EZETIMIBE
     Dosage: UNK
  8. OMEPRAZOLE. [Concomitant]
     Active Substance: OMEPRAZOLE
     Dosage: UNK
  9. KERYDIN [Concomitant]
     Active Substance: TAVABOROLE
     Dosage: UNK
  10. CRESTOR [Concomitant]
     Active Substance: ROSUVASTATIN CALCIUM
     Dosage: UNK
  11. DUPIXENT [Suspect]
     Active Substance: DUPILUMAB
     Indication: DERMATITIS ATOPIC
     Dosage: 600 MG,1X
     Route: 058
     Dates: start: 20171212, end: 20171212
  12. DUPIXENT [Suspect]
     Active Substance: DUPILUMAB
     Indication: DRY SKIN
     Dosage: 300 MG,QOW
     Route: 058
     Dates: start: 201712
  13. AZELASTINE. [Concomitant]
     Active Substance: AZELASTINE HYDROCHLORIDE
     Dosage: UNK
  14. FLUTICASONE. [Concomitant]
     Active Substance: FLUTICASONE
     Dosage: UNK

REACTIONS (8)
  - Vision blurred [Not Recovered/Not Resolved]
  - Dermatitis atopic [Unknown]
  - Therapeutic response decreased [Unknown]
  - Product dose omission issue [Unknown]
  - Lacrimation increased [Not Recovered/Not Resolved]
  - Incorrect dose administered [Unknown]
  - Cardiac operation [Unknown]
  - Product use in unapproved indication [Unknown]

NARRATIVE: CASE EVENT DATE: 201712
